FAERS Safety Report 4521310-3 (Version None)
Quarter: 2004Q4

REPORT INFORMATION
  Report Type: 
  Country: None (occurrence: None)
  Receive Date: 20041208
  Receipt Date: 20020920
  Transmission Date: 20050328
  Serious: Yes (Hospitalization, Other)
  Sender: FDA-Public Use
  Company Number: PHHO2002PL07013

PATIENT
  Age: 40 Year
  Sex: Female
  Weight: 53 kg

DRUGS (4)
  1. RAD [Suspect]
     Indication: RENAL TRANSPLANT
     Dosage: 1.5 MG, BID
     Route: 048
     Dates: start: 20020116
  2. NEORAL [Suspect]
     Indication: RENAL TRANSPLANT
     Dosage: 50 MG, BID
     Route: 048
     Dates: start: 20020116
  3. METHYLPREDNISOLONE [Suspect]
     Indication: RENAL TRANSPLANT
     Dosage: 8 MG, QD
     Route: 048
     Dates: start: 20020116
  4. CIPROFLOXACIN [Suspect]

REACTIONS (15)
  - ALANINE AMINOTRANSFERASE INCREASED [None]
  - ASPARTATE AMINOTRANSFERASE INCREASED [None]
  - BLOOD ALKALINE PHOSPHATASE INCREASED [None]
  - BLOOD BILIRUBIN INCREASED [None]
  - BOWEL SOUNDS ABNORMAL [None]
  - CARBOHYDRATE ANTIGEN 125 INCREASED [None]
  - DIARRHOEA [None]
  - DYSMENORRHOEA [None]
  - GASTROENTERITIS ROTAVIRUS [None]
  - GASTROINTESTINAL INFECTION [None]
  - OVARIAN CANCER [None]
  - OVARIAN CYST [None]
  - SUBILEUS [None]
  - UTERINE HAEMORRHAGE [None]
  - VOMITING [None]
